FAERS Safety Report 14606381 (Version 2)
Quarter: 2018Q4

REPORT INFORMATION
  Report Type: Spontaneous
  Country: IT (occurrence: IT)
  Receive Date: 20180307
  Receipt Date: 20181019
  Transmission Date: 20190204
  Serious: Yes (Other)
  Sender: FDA-Public Use
  Company Number: IT-ACCORD-063954

PATIENT
  Age: 47 Year
  Sex: Female

DRUGS (6)
  1. FOLINIC ACID [Suspect]
     Active Substance: LEUCOVORIN
     Indication: METASTASES TO PERITONEUM
  2. FLUOROURACIL. [Suspect]
     Active Substance: FLUOROURACIL
     Indication: METASTASES TO PERITONEUM
  3. OXALIPLATIN. [Suspect]
     Active Substance: OXALIPLATIN
     Indication: SMALL INTESTINE CARCINOMA
     Dosage: DRUG RE-INTRODUCED LATER AND WITHDRAWN AFTER 6 CYCLES
  4. PANITUMUMAB [Suspect]
     Active Substance: PANITUMUMAB
     Indication: SMALL INTESTINE CARCINOMA
     Dosage: REDUCED TO 80% OF THE FULL DOSE
  5. BEVACIZUMAB. [Suspect]
     Active Substance: BEVACIZUMAB
     Indication: METASTASES TO PERITONEUM
  6. CAPECITABINE. [Suspect]
     Active Substance: CAPECITABINE
     Indication: SMALL INTESTINE CARCINOMA
     Dosage: 625 MG/MQ BID DIE CONTINUOUSLY

REACTIONS (6)
  - Gastrointestinal toxicity [Unknown]
  - Rash follicular [Unknown]
  - Mucosal inflammation [Unknown]
  - Hypertension [Unknown]
  - Nausea [Unknown]
  - Off label use [Unknown]
